FAERS Safety Report 9797837 (Version 2)
Quarter: 2014Q1

REPORT INFORMATION
  Report Type: Spontaneous
  Country: US (occurrence: US)
  Receive Date: 20140106
  Receipt Date: 20140130
  Transmission Date: 20141002
  Serious: Yes (Other)
  Sender: FDA-Public Use
  Company Number: US-JNJFOC-20140100744

PATIENT
  Age: 81 Year
  Sex: Female
  Weight: 75.3 kg

DRUGS (9)
  1. XARELTO [Suspect]
     Indication: CEREBROVASCULAR ACCIDENT PROPHYLAXIS
     Route: 048
  2. XARELTO [Suspect]
     Indication: CEREBROVASCULAR ACCIDENT PROPHYLAXIS
     Route: 048
     Dates: start: 20131230
  3. XARELTO [Suspect]
     Indication: ATRIAL FIBRILLATION
     Route: 048
     Dates: start: 20131230
  4. XARELTO [Suspect]
     Indication: ATRIAL FIBRILLATION
     Route: 048
  5. METOPROLOL [Concomitant]
     Dosage: 25 UNITS UNSPECIFIED
     Route: 065
  6. FUROSEMIDE [Concomitant]
     Route: 065
  7. DIOVAN [Concomitant]
     Route: 065
  8. LIPITOR [Concomitant]
     Route: 065
  9. LOVAZA [Concomitant]
     Route: 065

REACTIONS (3)
  - Atrial fibrillation [Recovered/Resolved]
  - Bleeding varicose vein [Recovered/Resolved]
  - Laceration [Unknown]
